FAERS Safety Report 24588743 (Version 1)
Quarter: 2024Q4

REPORT INFORMATION
  Report Type: Report from Study
  Country: CA (occurrence: CA)
  Receive Date: 20241107
  Receipt Date: 20241107
  Transmission Date: 20250114
  Serious: Yes (Other)
  Sender: CSL BEHRING
  Company Number: CA-BEH-2024183753

PATIENT
  Age: 88 Year
  Sex: Female
  Weight: 78 kg

DRUGS (1)
  1. HIZENTRA [Suspect]
     Active Substance: HUMAN IMMUNOGLOBULIN G
     Indication: Secondary immunodeficiency
     Dosage: 8 G, QW
     Route: 065
     Dates: start: 20241030

REACTIONS (5)
  - Cancer in remission [Unknown]
  - Deafness [Unknown]
  - Balance disorder [Unknown]
  - Visual impairment [Unknown]
  - Wound [Unknown]
